FAERS Safety Report 9908433 (Version 1)
Quarter: 2014Q1

REPORT INFORMATION
  Report Type: Spontaneous
  Country: US (occurrence: None)
  Receive Date: 20140214
  Receipt Date: 20140214
  Transmission Date: 20141002
  Serious: Yes (Hospitalization)
  Sender: FDA-Public Use
  Company Number: None

PATIENT
  Sex: Male
  Weight: 79.8 kg

DRUGS (3)
  1. ECASA [Suspect]
     Indication: AORTIC VALVE REPLACEMENT
     Route: 048
  2. DORZOLAMIDE [Concomitant]
  3. TIMOLOL [Concomitant]

REACTIONS (4)
  - Haematochezia [None]
  - Gastritis [None]
  - Diverticulitis [None]
  - Upper gastrointestinal haemorrhage [None]
